FAERS Safety Report 5633343-4 (Version None)
Quarter: 2008Q1

REPORT INFORMATION
  Report Type: 
  Country: None (occurrence: None)
  Receive Date: 20080221
  Receipt Date: 20080211
  Transmission Date: 20080703
  Serious: Yes (Hospitalization)
  Sender: FDA-Public Use
  Company Number: GB-PFIZER INC-2008001596

PATIENT
  Sex: Male

DRUGS (5)
  1. SALAZOPYRIN [Suspect]
     Route: 048
  2. ALLOPURINOL [Concomitant]
     Route: 048
  3. KETOPROFEN [Concomitant]
     Route: 048
  4. COMBIVENT [Concomitant]
     Route: 055
  5. BECLOMETHASONE DIPROPIONATE [Concomitant]
     Route: 055

REACTIONS (2)
  - ASTHMA [None]
  - EOSINOPHILIA [None]
